APPROVED DRUG PRODUCT: CYTARABINE
Active Ingredient: CYTARABINE
Strength: 20MG/ML
Dosage Form/Route: INJECTABLE;INJECTION
Application: A206190 | Product #001
Applicant: MEITHEAL PHARMACEUTICALS INC
Approved: Nov 9, 2017 | RLD: No | RS: No | Type: DISCN